FAERS Safety Report 5302919-6 (Version None)
Quarter: 2007Q2

REPORT INFORMATION
  Report Type: 
  Country: None (occurrence: None)
  Receive Date: 20070419
  Receipt Date: 20070419
  Transmission Date: 20071010
  Serious: Yes (Hospitalization)
  Sender: FDA-Public Use
  Company Number: None

PATIENT
  Sex: Male
  Weight: 107.7 kg

DRUGS (4)
  1. FLUOROURACIL [Suspect]
     Dosage: 19460 MG
     Dates: end: 20070403
  2. BEVACIZUMAB (RHUMAB VEGF) [Suspect]
     Dosage: 1540 MG
     Dates: end: 20070403
  3. CAMPTOSAR [Suspect]
     Dosage: 1252 MG
     Dates: end: 20070403
  4. LEUCOVORIN CALCIUM [Suspect]
     Dosage: 2780 MG
     Dates: end: 20070403

REACTIONS (1)
  - PNEUMONIA [None]
